FAERS Safety Report 13423309 (Version 2)
Quarter: 2017Q2

REPORT INFORMATION
  Report Type: Report from Study
  Country: US (occurrence: US)
  Receive Date: 20170410
  Receipt Date: 20170621
  Transmission Date: 20170830
  Serious: Yes (Hospitalization)
  Sender: FDA-Public Use
  Company Number: US-CELGENEUS-USA-2016114205

PATIENT
  Age: 71 Year
  Sex: Male
  Weight: 131.62 kg

DRUGS (22)
  1. CALCIUM 500/VITAMIN D [Concomitant]
     Indication: MINERAL SUPPLEMENTATION
     Dosage: 1000 MILLIGRAM
     Route: 048
  2. TRAZODONE HYDROCHLORIDE. [Concomitant]
     Active Substance: TRAZODONE HYDROCHLORIDE
     Indication: INSOMNIA
     Dosage: 50 MILLIGRAM
     Route: 048
  3. LORATADINE. [Concomitant]
     Active Substance: LORATADINE
     Indication: MULTIPLE ALLERGIES
     Dosage: 10 MILLIGRAM
     Route: 048
  4. DOXAZOSIN MESYLATE. [Concomitant]
     Active Substance: DOXAZOSIN MESYLATE
     Indication: URINARY TRACT DISORDER
     Dosage: .5 DOSAGE FORMS
     Route: 048
  5. GABAPENTIN. [Concomitant]
     Active Substance: GABAPENTIN
     Indication: ANXIETY
  6. ASPIRIN. [Concomitant]
     Active Substance: ASPIRIN
     Indication: THROMBOSIS PROPHYLAXIS
     Dosage: 81 MILLIGRAM
     Route: 048
  7. SILDENAFIL CITRATE. [Concomitant]
     Active Substance: SILDENAFIL CITRATE
     Indication: ERECTILE DYSFUNCTION
     Dosage: 1 TABLET
     Route: 048
  8. ALBUTEROL SULFATE. [Concomitant]
     Active Substance: ALBUTEROL SULFATE
     Indication: RESPIRATORY DISORDER
     Dosage: 4 DOSAGE FORMS
     Route: 055
  9. CC-5013 [Suspect]
     Active Substance: LENALIDOMIDE
     Indication: B-CELL LYMPHOMA
     Dosage: 20 MILLIGRAM
     Route: 048
     Dates: start: 20160915, end: 20161005
  10. CC-5013 [Suspect]
     Active Substance: LENALIDOMIDE
     Dosage: 15 MILLIGRAM
     Route: 048
     Dates: start: 20161013, end: 20161102
  11. TIOTROPIUM [Concomitant]
     Active Substance: TIOTROPIUM
     Indication: RESPIRATORY DISORDER
     Dosage: 36 MICROGRAM
     Route: 055
  12. HYDROCODONE-ACETAMINOPHEN [Concomitant]
     Active Substance: ACETAMINOPHEN\HYDROCODONE
     Indication: PRODUCT USED FOR UNKNOWN INDICATION
     Dosage: 10/325 MG
     Route: 048
     Dates: start: 20160922
  13. BUDESONIDE. [Concomitant]
     Active Substance: BUDESONIDE
     Indication: RESPIRATORY DISORDER
     Dosage: 2 PUFFS
     Route: 055
  14. IBUPROFEN. [Concomitant]
     Active Substance: IBUPROFEN
     Indication: INFLAMMATION
  15. FUROSEMIDE. [Concomitant]
     Active Substance: FUROSEMIDE
     Indication: DIURETIC THERAPY
     Dosage: 160 MILLIGRAM
     Route: 048
  16. RITUXIMAB [Suspect]
     Active Substance: RITUXIMAB
     Indication: LYMPHOMA
     Dosage: 375 MILLIGRAM/SQ. METER
     Route: 041
     Dates: start: 20160915, end: 20161006
  17. RITUXIMAB [Suspect]
     Active Substance: RITUXIMAB
     Dosage: 375 MILLIGRAM/SQ. METER
     Route: 041
     Dates: start: 20161013, end: 20161013
  18. LISINOPRIL. [Concomitant]
     Active Substance: LISINOPRIL
     Indication: BLOOD PRESSURE MEASUREMENT
     Dosage: 20 MILLIGRAM
     Route: 048
  19. IBUPROFEN. [Concomitant]
     Active Substance: IBUPROFEN
     Indication: PAIN
     Dosage: 1200 MILLIGRAM
     Route: 048
  20. GABAPENTIN. [Concomitant]
     Active Substance: GABAPENTIN
     Indication: PAIN
     Dosage: 600 MILLIGRAM
     Route: 048
  21. ATORVASTATIN CALCIUM. [Concomitant]
     Active Substance: ATORVASTATIN CALCIUM
     Indication: BLOOD CHOLESTEROL
     Dosage: 80 TABLET
     Route: 048
     Dates: start: 20160302
  22. CARVEDILOL. [Concomitant]
     Active Substance: CARVEDILOL
     Indication: CARDIAC DISORDER
     Dosage: 12.5 MILLIGRAM
     Route: 048

REACTIONS (3)
  - Acute kidney injury [Recovered/Resolved]
  - Dehydration [Recovered/Resolved]
  - Rhabdomyolysis [Recovered/Resolved]

NARRATIVE: CASE EVENT DATE: 20161111
